FAERS Safety Report 19722285 (Version 1)
Quarter: 2021Q3

REPORT INFORMATION
  Report Type: Spontaneous
  Country: DE (occurrence: DE)
  Receive Date: 20210819
  Receipt Date: 20210819
  Transmission Date: 20211014
  Serious: Yes (Hospitalization)
  Sender: FDA-Public Use
  Company Number: DE-MYLANLABS-2021M1052135

PATIENT
  Age: 83 Year
  Sex: Female

DRUGS (10)
  1. ATENOLOL. [Concomitant]
     Active Substance: ATENOLOL
     Dosage: 50 MILLIGRAM, QD, 1?0?0?0
     Route: 048
  2. KALIUMCHLORID [Concomitant]
     Active Substance: POTASSIUM CHLORIDE
     Dosage: 600 MILLIGRAM,  2?2?2?0
     Route: 048
  3. CITALOPRAM [Concomitant]
     Active Substance: CITALOPRAM HYDROBROMIDE
     Dosage: 10 MILLIGRAM, QD, 1?0?0?0
     Route: 048
  4. IBUPROFEN. [Suspect]
     Active Substance: IBUPROFEN
     Indication: PRODUCT USED FOR UNKNOWN INDICATION
     Dosage: 600 MILLIGRAM, QD, 1?0?0?0
     Route: 048
  5. TORASEMIDE [Suspect]
     Active Substance: TORSEMIDE
     Indication: PRODUCT USED FOR UNKNOWN INDICATION
     Dosage: UNK
  6. AMLODIPINE [Suspect]
     Active Substance: AMLODIPINE BESYLATE
     Indication: PRODUCT USED FOR UNKNOWN INDICATION
     Dosage: 10 MG, 0.5?0?0.5?0
     Route: 048
  7. PREGABALIN. [Concomitant]
     Active Substance: PREGABALIN
     Dosage: 75 MILLIGRAM, QD,  0?2?0?0
     Route: 048
  8. LORAZEPAM. [Concomitant]
     Active Substance: LORAZEPAM
     Dosage: 1 MG, 1?0?0?0
     Route: 048
  9. RAMIPRIL. [Suspect]
     Active Substance: RAMIPRIL
     Indication: PRODUCT USED FOR UNKNOWN INDICATION
     Dosage: 10 MG, 0.5?0?0.5?0
     Route: 048
  10. EDOXABAN [Concomitant]
     Active Substance: EDOXABAN TOSYLATE
     Dosage: 30 MILLIGRAM, 1?0?0?0,
     Route: 048

REACTIONS (5)
  - Confusional state [Recovering/Resolving]
  - Dehydration [Recovering/Resolving]
  - Disorientation [Recovering/Resolving]
  - Depressed level of consciousness [Recovering/Resolving]
  - General physical health deterioration [Recovering/Resolving]
